FAERS Safety Report 7019819-6 (Version None)
Quarter: 2010Q3

REPORT INFORMATION
  Report Type: 
  Country: None (occurrence: None)
  Receive Date: 20100922
  Receipt Date: 20100910
  Transmission Date: 20110219
  Serious: Yes (Other)
  Sender: FDA-Public Use
  Company Number: DSJ-2010-13898

PATIENT
  Age: 77 Year
  Sex: Female
  Weight: 52 kg

DRUGS (7)
  1. OLMETEC (OLMESARTAN MEDOXOMIL) (TABLET) (OLMESARTAN MEDOXOMIL) [Suspect]
     Indication: HYPERTENSION
     Dosage: 40 MG (20 MG,2 IN 1 D),PER ORAL
     Route: 048
     Dates: start: 20100312, end: 20100726
  2. EPLERENONE [Suspect]
     Indication: HYPERTENSION
     Dosage: 50 MG (50 MG,1 IN 1 D),PER ORAL
     Route: 048
     Dates: start: 20100709, end: 20100726
  3. TOWAMIN (ATENOLOL) (ATENOLOL) [Concomitant]
  4. PLAVIX [Concomitant]
  5. NEWTOLIDE (HYDROCHLOROTHIAZIDE) (HYDROCHLOROTHIAZIDE) [Concomitant]
  6. AMLODIPINE [Concomitant]
  7. CARDENALIN (DOXAZOSIN MESILATE) (DOXAZOSIN MESILATE) [Concomitant]

REACTIONS (4)
  - ALTERED STATE OF CONSCIOUSNESS [None]
  - BRADYCARDIA [None]
  - CHEST DISCOMFORT [None]
  - HYPERKALAEMIA [None]
